FAERS Safety Report 8422712 (Version 3)
Quarter: 2012Q4

REPORT INFORMATION
  Report Type: 
  Country: US (occurrence: US)
  Receive Date: 20120223
  Receipt Date: 20121022
  Transmission Date: 20130627
  Serious: Yes (Hospitalization)
  Sender: FDA-Public Use
  Company Number: US-ACTELION-A-NJ2011-53351

PATIENT
  Age: 77 Year
  Sex: Female

DRUGS (2)
  1. TRACLEER [Suspect]
     Indication: PULMONARY ARTERIAL HYPERTENSION
     Dosage: UNK
     Route: 048
  2. REVATIO [Concomitant]

REACTIONS (8)
  - Staphylococcal infection [Unknown]
  - Rheumatoid arthritis [Unknown]
  - Gait disturbance [Unknown]
  - Cystitis [Unknown]
  - Body temperature increased [Unknown]
  - Urinary tract infection [Unknown]
  - Dyspnoea [Unknown]
  - Fatigue [Unknown]
